FAERS Safety Report 8550249-1 (Version None)
Quarter: 2012Q3

REPORT INFORMATION
  Report Type: 
  Country: None (occurrence: None)
  Receive Date: 20120730
  Receipt Date: 20110602
  Transmission Date: 20120928
  Serious: No
  Sender: FDA-Public Use
  Company Number: US-ALLERGAN-1107594US

PATIENT
  Sex: Female

DRUGS (2)
  1. LATISSE [Suspect]
     Indication: PRODUCT USED FOR UNKNOWN INDICATION
     Dosage: UNK
     Dates: start: 20110511, end: 20110525
  2. BOTOX COSMETIC [Concomitant]
     Indication: SKIN WRINKLING
     Dosage: UNK

REACTIONS (3)
  - EYE SWELLING [None]
  - CONJUNCTIVAL HYPERAEMIA [None]
  - PHOTOPHOBIA [None]
